FAERS Safety Report 9541122 (Version 2)
Quarter: 2013Q4

REPORT INFORMATION
  Report Type: Spontaneous
  Country: US (occurrence: US)
  Receive Date: 20130923
  Receipt Date: 20131022
  Transmission Date: 20140711
  Serious: Yes (Hospitalization)
  Sender: FDA-Public Use
  Company Number: US-BIOGENIDEC-2013BI089426

PATIENT
  Age: 65 Year
  Sex: Female

DRUGS (7)
  1. AVONEX [Suspect]
     Indication: MULTIPLE SCLEROSIS
     Route: 030
     Dates: start: 20010309, end: 2003
  2. AVONEX [Suspect]
     Indication: MULTIPLE SCLEROSIS
     Route: 030
     Dates: start: 2003, end: 2013
  3. AVONEX [Suspect]
     Indication: MULTIPLE SCLEROSIS
     Route: 030
     Dates: start: 2013
  4. BACLOFEN [Concomitant]
     Indication: RESTLESS LEGS SYNDROME
  5. NEURONTIN [Concomitant]
     Indication: RESTLESS LEGS SYNDROME
  6. REQUIP [Concomitant]
     Indication: RESTLESS LEGS SYNDROME
  7. SINEMET [Concomitant]
     Indication: RESTLESS LEGS SYNDROME

REACTIONS (27)
  - Intervertebral disc degeneration [Unknown]
  - Scoliosis [Recovered/Resolved]
  - Back disorder [Unknown]
  - Poor venous access [Unknown]
  - Hypoaesthesia [Unknown]
  - Spinal osteoarthritis [Unknown]
  - Nerve compression [Unknown]
  - Balance disorder [Recovered/Resolved]
  - Fall [Recovered/Resolved]
  - Periorbital contusion [Recovered/Resolved]
  - Hypertension [Recovered/Resolved]
  - Aphasia [Not Recovered/Not Resolved]
  - Skin lesion [Not Recovered/Not Resolved]
  - Impaired healing [Not Recovered/Not Resolved]
  - Psoriasis [Not Recovered/Not Resolved]
  - Disturbance in attention [Recovered/Resolved]
  - Raynaud^s phenomenon [Not Recovered/Not Resolved]
  - Injection site haemorrhage [Recovered/Resolved]
  - Reading disorder [Not Recovered/Not Resolved]
  - Visual impairment [Unknown]
  - Cognitive disorder [Not Recovered/Not Resolved]
  - Fatigue [Recovered/Resolved]
  - Dizziness [Recovered/Resolved]
  - Nausea [Recovered/Resolved]
  - Pain in extremity [Recovered/Resolved]
  - Feeling abnormal [Recovered/Resolved]
  - Injection site pain [Unknown]
